FAERS Safety Report 7656423-0 (Version None)
Quarter: 2011Q3

REPORT INFORMATION
  Report Type: 
  Country: None (occurrence: None)
  Receive Date: 20110804
  Receipt Date: 20110727
  Transmission Date: 20111222
  Serious: Yes (Hospitalization)
  Sender: FDA-Public Use
  Company Number: US-GLAXOSMITHKLINE-B0736596A

PATIENT
  Age: 46 Year
  Sex: Female

DRUGS (8)
  1. XANAX [Concomitant]
     Dates: start: 20080408
  2. PEPCID [Concomitant]
     Dates: start: 20100428
  3. IMODIUM [Concomitant]
     Dates: start: 20100622
  4. AMBIEN [Concomitant]
     Dates: start: 20080628
  5. CAPECITABINE [Suspect]
     Indication: BREAST CANCER
     Dosage: 1150MG TWICE PER DAY
     Route: 048
     Dates: start: 20100412
  6. MORPHINE SULFATE [Concomitant]
     Dates: start: 20100325
  7. LAPATINIB [Suspect]
     Indication: BREAST CANCER
     Dosage: 1000MG PER DAY
     Route: 048
     Dates: start: 20100412
  8. NORCO [Concomitant]
     Dates: start: 20100325

REACTIONS (1)
  - THROMBOSIS [None]
